FAERS Safety Report 10415482 (Version 1)
Quarter: 2014Q3

REPORT INFORMATION
  Report Type: Spontaneous
  Country: US (occurrence: US)
  Receive Date: 20140828
  Receipt Date: 20140828
  Transmission Date: 20150326
  Serious: Yes (Hospitalization)
  Sender: FDA-Public Use
  Company Number: US-ASTRAZENECA-2014SE62641

PATIENT
  Age: 68 Year
  Sex: Female
  Weight: 57.6 kg

DRUGS (9)
  1. LIPITOR [Concomitant]
     Active Substance: ATORVASTATIN CALCIUM
     Indication: BLOOD CHOLESTEROL ABNORMAL
     Dosage: NOT REPORTED NR
  2. POTASSIUM [Concomitant]
     Active Substance: POTASSIUM
     Dosage: NOT REPORTED NR
  3. TRAMADOL [Concomitant]
     Active Substance: TRAMADOL
     Indication: PAIN
     Dosage: 50 MG. NNR
  4. RAMIPRIL. [Concomitant]
     Active Substance: RAMIPRIL
     Indication: BLOOD PRESSURE ABNORMAL
     Dosage: NOT REPORTED NR
  5. PULMICORT TURBUHALER [Suspect]
     Active Substance: BUDESONIDE
     Indication: LUNG DISORDER
     Route: 055
     Dates: start: 20140812
  6. PULMICORT TURBUHALER [Suspect]
     Active Substance: BUDESONIDE
     Indication: DYSPNOEA
     Route: 055
     Dates: start: 20140812
  7. UNSPECIFIED BLOOD PRESSURE MEDICATION [Concomitant]
     Indication: BLOOD PRESSURE ABNORMAL
     Dosage: NOT REPORTED NR
  8. ZETIA [Concomitant]
     Active Substance: EZETIMIBE
     Dosage: NOT REPORTED NR
  9. FISH OIL [Concomitant]
     Active Substance: FISH OIL
     Dosage: NOT REPORTED NR

REACTIONS (3)
  - Off label use [Not Recovered/Not Resolved]
  - Back pain [Unknown]
  - Drug ineffective for unapproved indication [Unknown]

NARRATIVE: CASE EVENT DATE: 20140812
